FAERS Safety Report 21838722 (Version 1)
Quarter: 2023Q1

REPORT INFORMATION
  Report Type: Spontaneous
  Country: IR (occurrence: IR)
  Receive Date: 20230109
  Receipt Date: 20230109
  Transmission Date: 20230417
  Serious: Yes (Hospitalization)
  Sender: FDA-Public Use
  Company Number: IR-MYLANLABS-2022M1141148

PATIENT
  Age: 53 Year
  Sex: Male

DRUGS (7)
  1. FLUOROURACIL [Suspect]
     Active Substance: FLUOROURACIL
     Indication: Hypertrophic olivary degeneration
     Dosage: UNK, CYCLE, 6CYCLES, EACH CYCLE LASTS FOR 2WEEK
     Route: 065
  2. METHYLPREDNISOLONE [Suspect]
     Active Substance: METHYLPREDNISOLONE
     Indication: Hypertrophic olivary degeneration
     Dosage: 1 GRAM, QD, 5 CONSECUTIVE DAYS
     Route: 065
  3. LEUCOVORIN [Suspect]
     Active Substance: LEUCOVORIN
     Indication: Hypertrophic olivary degeneration
     Dosage: UNK, CYCLE, 6CYCLES, EACH CYCLE LASTS FOR 2WEEK
     Route: 065
  4. OXALIPLATIN [Suspect]
     Active Substance: OXALIPLATIN
     Indication: Hypertrophic olivary degeneration
     Dosage: UNK, CYCLE,6CYCLES, EACH CYCLE LASTS FOR 2WEEK
     Route: 065
  5. IRINOTECAN [Suspect]
     Active Substance: IRINOTECAN
     Indication: Hypertrophic olivary degeneration
     Dosage: UNK, CYCLE, 6CYCLES, EACH CYCLE LASTS FOR 2WEEK
     Route: 065
  6. HUMAN IMMUNOGLOBULIN G [Suspect]
     Active Substance: HUMAN IMMUNOGLOBULIN G
     Indication: Gastrointestinal carcinoma
     Dosage: 0.4 GRAM, QD, 0.4 G/KG/DAY
     Route: 042
  7. HUMAN IMMUNOGLOBULIN G [Suspect]
     Active Substance: HUMAN IMMUNOGLOBULIN G
     Dosage: 1 GRAM, 1G/KG MONTHLY
     Route: 042

REACTIONS (2)
  - Drug ineffective [Unknown]
  - Off label use [Unknown]
